FAERS Safety Report 18431900 (Version 2)
Quarter: 2020Q4

REPORT INFORMATION
  Report Type: Spontaneous
  Country: US (occurrence: US)
  Receive Date: 20201027
  Receipt Date: 20201105
  Transmission Date: 20210114
  Serious: Yes (Hospitalization)
  Sender: FDA-Public Use
  Company Number: US-PFIZER INC-2020415066

PATIENT
  Age: 82 Year
  Sex: Female
  Weight: 113.4 kg

DRUGS (2)
  1. XELJANZ XR [Suspect]
     Active Substance: TOFACITINIB CITRATE
     Indication: RHEUMATOID ARTHRITIS
     Dosage: 11 MG, ONCE A DAY
     Route: 048
     Dates: start: 2019
  2. XELJANZ XR [Suspect]
     Active Substance: TOFACITINIB CITRATE
     Indication: OSTEOARTHRITIS

REACTIONS (4)
  - Peroneal nerve palsy [Unknown]
  - Fall [Recovered/Resolved with Sequelae]
  - Intervertebral disc compression [Recovered/Resolved with Sequelae]
  - Gait inability [Unknown]

NARRATIVE: CASE EVENT DATE: 20200510
